FAERS Safety Report 25919907 (Version 1)
Quarter: 2025Q4

REPORT INFORMATION
  Report Type: Spontaneous
  Country: US (occurrence: None)
  Receive Date: 20251009
  Receipt Date: 20251009
  Transmission Date: 20260117
  Serious: No
  Sender: FDA-CTU
  Company Number: None

PATIENT
  Sex: Female

DRUGS (1)
  1. TERIPARATIDE [Suspect]
     Active Substance: TERIPARATIDE
     Indication: Senile osteoporosis
     Dosage: 20 UG MICROCRAM(S) DAILY SUBCUTANEOUS
     Route: 058
     Dates: start: 20250528

REACTIONS (3)
  - Device defective [None]
  - Product dose omission in error [None]
  - Device use error [None]
